FAERS Safety Report 5280090-7 (Version None)
Quarter: 2007Q1

REPORT INFORMATION
  Report Type: 
  Country: None (occurrence: None)
  Receive Date: 20061229
  Receipt Date: 20060731
  Transmission Date: 20070707
  Serious: Yes (Other)
  Sender: FDA-Public Use
  Company Number: 2006UW15327

PATIENT
  Age: 76 Year
  Sex: Male
  Weight: 88.45 kg

DRUGS (9)
  1. CRESTOR [Suspect]
     Indication: BLOOD CHOLESTEROL INCREASED
     Dosage: 5 MG PO
     Route: 048
     Dates: start: 20060701, end: 20060731
  2. PLAVIX [Concomitant]
  3. ALLOPURINOL [Concomitant]
  4. METFORMIN [Concomitant]
  5. PREDNISONE TAB [Concomitant]
  6. SYNTHROID [Concomitant]
  7. ZETIA [Concomitant]
  8. ATENOLOL [Concomitant]
  9. ZOCOR [Concomitant]

REACTIONS (3)
  - ABDOMINAL PAIN UPPER [None]
  - HYPERHIDROSIS [None]
  - NAUSEA [None]
